FAERS Safety Report 25428259 (Version 1)
Quarter: 2025Q2

REPORT INFORMATION
  Report Type: Spontaneous
  Country: US (occurrence: US)
  Receive Date: 20250612
  Receipt Date: 20250612
  Transmission Date: 20250717
  Serious: No
  Sender: SANOFI AVENTIS
  Company Number: US-SA-2025SA164488

PATIENT
  Age: 74 Year
  Sex: Male

DRUGS (7)
  1. DUPIXENT [Suspect]
     Active Substance: DUPILUMAB
     Indication: Chronic obstructive pulmonary disease
     Dosage: 300 MG, QOW
     Route: 058
  2. ALBUTEROL [Concomitant]
     Active Substance: ALBUTEROL
  3. FINASTERIDE [Concomitant]
     Active Substance: FINASTERIDE
  4. FLUOXETINE [Concomitant]
     Active Substance: FLUOXETINE HYDROCHLORIDE
  5. IPRATROPIUM [Concomitant]
     Active Substance: IPRATROPIUM
  6. MOUNJARO [Concomitant]
     Active Substance: TIRZEPATIDE
  7. THEOPHYLLINE [Concomitant]
     Active Substance: THEOPHYLLINE

REACTIONS (7)
  - Lethargy [Unknown]
  - Acne [Unknown]
  - Urticaria [Recovered/Resolved]
  - Injection site pain [Unknown]
  - Arthralgia [Recovered/Resolved]
  - Accidental exposure to product [Unknown]
  - Exposure via skin contact [Unknown]
